FAERS Safety Report 12763659 (Version 5)
Quarter: 2018Q4

REPORT INFORMATION
  Report Type: Spontaneous
  Country: FR (occurrence: FR)
  Receive Date: 20160920
  Receipt Date: 20181128
  Transmission Date: 20190204
  Serious: Yes (Congenital Anomaly, Other)
  Sender: FDA-Public Use
  Company Number: FR-ABBVIE-16P-056-1731794-00

PATIENT
  Sex: Male
  Weight: 4 kg

DRUGS (1)
  1. DEPAKINE CHRONO [Suspect]
     Active Substance: VALPROATE SODIUM
     Indication: MATERNAL EXPOSURE TIMING UNSPECIFIED
     Route: 064

REACTIONS (18)
  - Memory impairment [Unknown]
  - Motor dysfunction [Recovered/Resolved]
  - Tooth disorder [Unknown]
  - Phobia [Unknown]
  - Mental disorder [Unknown]
  - Disturbance in social behaviour [Recovered/Resolved]
  - Cognitive disorder [Recovered/Resolved]
  - Myopia [Not Recovered/Not Resolved]
  - Autism spectrum disorder [Unknown]
  - Anxiety [Unknown]
  - Foetal exposure during pregnancy [Unknown]
  - Dysmorphism [Not Recovered/Not Resolved]
  - Aggression [Recovered/Resolved]
  - Speech disorder [Unknown]
  - Abnormal behaviour [Unknown]
  - Tic [Not Recovered/Not Resolved]
  - Disturbance in attention [Unknown]
  - Agitation [Recovered/Resolved]

NARRATIVE: CASE EVENT DATE: 2003
